FAERS Safety Report 8558135-8 (Version None)
Quarter: 2012Q3

REPORT INFORMATION
  Report Type: 
  Country: None (occurrence: None)
  Receive Date: 20120801
  Receipt Date: 19960426
  Transmission Date: 20120928
  Serious: No
  Sender: FDA-Public Use
  Company Number: US-009507513-96042447

PATIENT

DRUGS (3)
  1. FOSAMAX [Suspect]
     Dosage: 10 MG, QD
     Route: 048
     Dates: start: 19951227
  2. SYNTHROID [Concomitant]
  3. MK-2933 [Concomitant]

REACTIONS (2)
  - ARTHRALGIA [None]
  - FLATULENCE [None]
